FAERS Safety Report 4747321-0 (Version None)
Quarter: 2005Q3

REPORT INFORMATION
  Report Type: 
  Country: None (occurrence: None)
  Receive Date: 20050815
  Receipt Date: 20050516
  Transmission Date: 20060218
  Serious: No
  Sender: FDA-Public Use
  Company Number: USA050598076

PATIENT
  Age: 57 Year
  Sex: Male

DRUGS (6)
  1. CIALIS [Suspect]
     Indication: ERECTILE DYSFUNCTION
     Dosage: 20 MG
     Dates: start: 20050509
  2. ALTACE [Concomitant]
  3. ATACAND [Concomitant]
  4. TOPROL-XL [Concomitant]
  5. ACTOS [Concomitant]
  6. GLUCOPHAGE [Concomitant]

REACTIONS (1)
  - MYALGIA [None]
